FAERS Safety Report 4789032-1 (Version None)
Quarter: 2005Q4

REPORT INFORMATION
  Report Type: 
  Country: None (occurrence: None)
  Receive Date: 20051004
  Receipt Date: 20050721
  Transmission Date: 20060501
  Serious: Yes (Hospitalization)
  Sender: FDA-Public Use
  Company Number: HECT-10079

PATIENT
  Age: 29 Year
  Sex: Female
  Weight: 58 kg

DRUGS (27)
  1. HECTOROL [Suspect]
     Indication: HYPERPARATHYROIDISM SECONDARY
     Dosage: 4 MCG 3X/W IV
     Route: 042
     Dates: start: 20030930, end: 20031024
  2. ACYCLOVIR [Concomitant]
  3. LOVENOX [Concomitant]
  4. EPOGEN [Concomitant]
  5. PLENDIL [Concomitant]
  6. FOLIC ACID [Concomitant]
  7. NEURONTIN [Concomitant]
  8. HEPARIN [Concomitant]
  9. 2% NITROGLYCERIN OINTMENT [Concomitant]
  10. CYANOCOBALAMIN (VITAMIN B12) [Concomitant]
  11. RENAGEL [Concomitant]
  12. VITAMIN B6 [Concomitant]
  13. DIOVAN [Concomitant]
  14. COUMADIN [Concomitant]
  15. TYLENOL (CAPLET) [Concomitant]
  16. DARVOCET-N-100 (ACETAMINOPHEN + PROPOXYPHENE) [Concomitant]
  17. CATAPRES [Concomitant]
  18. BENADRYL [Concomitant]
  19. DALAMANE [Concomitant]
  20. VISTARIL [Concomitant]
  21. CHRONULAC [Concomitant]
  22. MORPHINE [Concomitant]
  23. NUBAIN (NALBUPINE HYDROCHLORIDE) [Concomitant]
  24. TALWIN [Concomitant]
  25. MIRALAX [Concomitant]
  26. TIGAN [Concomitant]
  27. AMBIEN [Concomitant]

REACTIONS (6)
  - ABDOMINAL PAIN [None]
  - BLOOD PARATHYROID HORMONE INCREASED [None]
  - BLOOD PHOSPHORUS INCREASED [None]
  - GAIT DISTURBANCE [None]
  - KNEE OPERATION [None]
  - MUSCLE INJURY [None]
